FAERS Safety Report 6535468-8 (Version None)
Quarter: 2009Q4

REPORT INFORMATION
  Report Type: 
  Country: None (occurrence: None)
  Receive Date: 20091228
  Receipt Date: 20090602
  Transmission Date: 20100525
  Serious: Yes (Life-Threatening, Hospitalization)
  Sender: FDA-Public Use
  Company Number: US-002968

PATIENT
  Age: 57 Year
  Sex: Male

DRUGS (9)
  1. MULTIHANCE [Suspect]
     Indication: DEEP VEIN THROMBOSIS
     Dosage: 60ML ONCE
  2. MULTIHANCE [Suspect]
     Indication: NUCLEAR MAGNETIC RESONANCE IMAGING ABDOMINAL
     Dosage: 60ML ONCE
  3. MULTIHANCE [Suspect]
     Indication: PARADOXICAL EMBOLISM
     Dosage: 60ML ONCE
  4. SERTRALINE HCL [Concomitant]
  5. ALLOPURINOL [Concomitant]
  6. TERAZOSIN HCL [Concomitant]
  7. FLUTICASONE NASAL SPRAY (FLUTICASONE) [Concomitant]
  8. ASPIRIN [Concomitant]
  9. UNFRACTIONATED HEPARIN INFUSION (HEPARIN SODIUM) [Concomitant]

REACTIONS (2)
  - ANAPHYLACTOID REACTION [None]
  - TYPE I HYPERSENSITIVITY [None]
